FAERS Safety Report 21791587 (Version 1)
Quarter: 2022Q4

REPORT INFORMATION
  Report Type: Spontaneous
  Country: US (occurrence: US)
  Receive Date: 20221228
  Receipt Date: 20221228
  Transmission Date: 20230112
  Serious: No
  Sender: FDA-Public Use
  Company Number: US-SA-SAC20221228000500

PATIENT
  Sex: Male

DRUGS (1)
  1. DUPIXENT [Suspect]
     Active Substance: DUPILUMAB
     Dosage: 200MG, FREQUENCY:OTHER
     Route: 058

REACTIONS (2)
  - Eye pruritus [Recovering/Resolving]
  - Dry eye [Recovering/Resolving]
